FAERS Safety Report 10600764 (Version 1)
Quarter: 2014Q4

REPORT INFORMATION
  Report Type: Spontaneous
  Country: US (occurrence: None)
  Receive Date: 20141119
  Receipt Date: 20141119
  Transmission Date: 20150529
  Serious: No
  Sender: FDA-Public Use
  Company Number: 1000071161

PATIENT
  Age: 50 Year
  Sex: Female

DRUGS (1)
  1. TUDORZA PRESSAIR [Suspect]
     Active Substance: ACLIDINIUM BROMIDE
     Indication: ASTHMA
     Dosage: RESPIRATORY
     Route: 055
     Dates: start: 20140917

REACTIONS (4)
  - Hyperhidrosis [None]
  - Dizziness [None]
  - Off label use [None]
  - Feeling hot [None]

NARRATIVE: CASE EVENT DATE: 201409
